FAERS Safety Report 5106229-1 (Version None)
Quarter: 2006Q3

REPORT INFORMATION
  Report Type: 
  Country: None (occurrence: None)
  Receive Date: 20060912
  Receipt Date: 20060830
  Transmission Date: 20061208
  Serious: Yes (Death, Other)
  Sender: FDA-Public Use
  Company Number: 2006106486

PATIENT
  Age: 82 Year
  Sex: Female

DRUGS (7)
  1. LYRICA [Suspect]
     Indication: DRUG USE FOR UNKNOWN INDICATION
     Dosage: (75 MG, 1 IN 1 D),
  2. AMITRITYLINE (AMITRIPTYLINE) [Concomitant]
  3. ENOXAPARIN SODIUM [Concomitant]
  4. METOPROLOL (METOPROLOL) [Concomitant]
  5. ASPIRIN [Concomitant]
  6. LIPITOR [Concomitant]
  7. ACE INHIBITOR NOS (ACE INHIBITOR NOS) [Concomitant]

REACTIONS (3)
  - ELECTROMECHANICAL DISSOCIATION [None]
  - MYOCARDIAL INFARCTION [None]
  - PULMONARY EMBOLISM [None]
